FAERS Safety Report 9863658 (Version 1)
Quarter: 2014Q1

REPORT INFORMATION
  Report Type: Report from Study
  Country: US (occurrence: US)
  Receive Date: 20140203
  Receipt Date: 20140203
  Transmission Date: 20141002
  Serious: Yes (Death, Life-Threatening, Other)
  Sender: FDA-Public Use
  Company Number: US-009507513-1401USA013403

PATIENT
  Sex: Female
  Weight: 110.5 kg

DRUGS (8)
  1. COZAAR [Suspect]
     Indication: INVESTIGATION
     Dosage: UNK
     Route: 048
     Dates: start: 20010402, end: 20041011
  2. INSULIN [Concomitant]
     Indication: DIABETES MELLITUS
     Dosage: TOTAL DAILY DOSE VARIABLE
     Route: 058
  3. DULOXETINE HYDROCHLORIDE [Concomitant]
     Indication: DEPRESSION
     Dosage: UNK
     Route: 048
  4. OXYCODONE [Concomitant]
     Indication: PAIN
     Dosage: UNK
     Route: 048
  5. LORAZEPAM [Concomitant]
     Indication: ANXIETY
     Dosage: UNK
     Route: 048
  6. COMPAZINE [Concomitant]
     Indication: NAUSEA
     Dosage: 10MG Q 6 PRN
  7. BENADRYL [Concomitant]
     Dosage: UNK
     Route: 048
  8. ACYCLOVIR [Concomitant]
     Dosage: UNK
     Route: 048

REACTIONS (1)
  - Plasma cell myeloma [Fatal]
